FAERS Safety Report 4530282-7 (Version None)
Quarter: 2004Q4

REPORT INFORMATION
  Report Type: 
  Country: None (occurrence: None)
  Receive Date: 20041215
  Receipt Date: 20041202
  Transmission Date: 20050328
  Serious: Yes (Hospitalization, Other)
  Sender: FDA-Public Use
  Company Number: 2004103932

PATIENT
  Age: 69 Year
  Sex: Female

DRUGS (8)
  1. SORTIS (ATORVASTATIN) [Suspect]
     Indication: ILL-DEFINED DISORDER
     Dosage: ORAL
     Route: 048
  2. CARVEDILOL [Concomitant]
  3. MOLSIDOMINE (MOLSIDOMINE) [Concomitant]
  4. FUROSEMIDE [Concomitant]
  5. XIPAMIDE (XIPAMIDE) [Concomitant]
  6. LEVOTHYROXINE SODIUM [Concomitant]
  7. ALLOPURINOL [Concomitant]
  8. AMIODARONE HCL [Concomitant]

REACTIONS (4)
  - CONDITION AGGRAVATED [None]
  - DEPRESSION [None]
  - RENAL FAILURE [None]
  - RHABDOMYOLYSIS [None]
